FAERS Safety Report 10530467 (Version 2)
Quarter: 2014Q4

REPORT INFORMATION
  Report Type: Report from Study
  Country: US (occurrence: US)
  Receive Date: 20141021
  Receipt Date: 20141021
  Transmission Date: 20150528
  Serious: Yes (Death, Life-Threatening, Hospitalization)
  Sender: FDA-Public Use
  Company Number: US-SA-CLOF-1001920

PATIENT
  Age: 70 Year
  Sex: Female
  Weight: 65.9 kg

DRUGS (10)
  1. GENTAMICIN. [Concomitant]
     Active Substance: GENTAMICIN
     Dosage: UNK
  2. VANCOMYCIN [Concomitant]
     Active Substance: VANCOMYCIN
     Dosage: UNK
     Dates: end: 20111029
  3. ZOSYN [Concomitant]
     Active Substance: PIPERACILLIN SODIUM\TAZOBACTAM SODIUM
     Dosage: UNK
     Route: 042
  4. VORICONAZOLE. [Concomitant]
     Active Substance: VORICONAZOLE
     Dosage: UNK
  5. ZITHROMAX [Concomitant]
     Active Substance: AZITHROMYCIN DIHYDRATE
     Indication: LUNG INFECTION
     Dosage: UNK
  6. CLOFARABINE [Suspect]
     Active Substance: CLOFARABINE
     Indication: ACUTE MYELOID LEUKAEMIA
     Dosage: 20 MG/M2, QD EVERY 24 HOURS
     Route: 065
     Dates: start: 20111018, end: 20111022
  7. CLOFARABINE [Suspect]
     Active Substance: CLOFARABINE
     Indication: ACUTE MYELOID LEUKAEMIA
     Dosage: 20 MG/M2, QD EVERY 24 HOURS
     Route: 065
     Dates: start: 20111107, end: 20111111
  8. DIFLUCAN [Concomitant]
     Active Substance: FLUCONAZOLE
     Indication: PYREXIA
     Dosage: UNK
  9. ACICLOVIR [Concomitant]
     Active Substance: ACYCLOVIR
     Indication: PYREXIA
     Dosage: UNK
     Route: 048
  10. AVELOX [Concomitant]
     Active Substance: MOXIFLOXACIN HYDROCHLORIDE
     Indication: LUNG INFECTION
     Dosage: UNK

REACTIONS (5)
  - Acute myeloid leukaemia [Fatal]
  - Acute kidney injury [Not Recovered/Not Resolved]
  - Febrile neutropenia [Recovered/Resolved]
  - Hypokalaemia [Not Recovered/Not Resolved]
  - Arrhythmia [Fatal]

NARRATIVE: CASE EVENT DATE: 2011
